FAERS Safety Report 16279459 (Version 2)
Quarter: 2019Q2

REPORT INFORMATION
  Report Type: Report from Study
  Country: JP (occurrence: JP)
  Receive Date: 20190507
  Receipt Date: 20190529
  Transmission Date: 20190711
  Serious: Yes (Other)
  Sender: FDA-Public Use
  Company Number: JP-CONCORDIA PHARMACEUTICALS INC.-GSH201905-001306

PATIENT
  Age: 40 Year
  Sex: Female
  Weight: 61 kg

DRUGS (15)
  1. PRAVASTATIN NA [Concomitant]
     Active Substance: PRAVASTATIN SODIUM
     Indication: SYSTEMIC LUPUS ERYTHEMATOSUS
  2. EPADEL [Concomitant]
     Active Substance: ICOSAPENT
     Indication: SYSTEMIC LUPUS ERYTHEMATOSUS
  3. BONALON [Concomitant]
     Active Substance: ALENDRONATE SODIUM
     Indication: PROPHYLAXIS
  4. BONALON [Concomitant]
     Active Substance: ALENDRONATE SODIUM
     Indication: INVESTIGATION
  5. FERROSTEC [Concomitant]
     Active Substance: SODIUM FERROUS CITRATE
     Indication: PRODUCT USED FOR UNKNOWN INDICATION
     Dates: start: 20170207
  6. NEXIUM [Concomitant]
     Active Substance: ESOMEPRAZOLE MAGNESIUM
     Indication: PROPHYLAXIS
  7. MYSLEE [Concomitant]
     Active Substance: ZOLPIDEM TARTRATE
     Indication: PRODUCT USED FOR UNKNOWN INDICATION
  8. PLAQUENIL [Suspect]
     Active Substance: HYDROXYCHLOROQUINE SULFATE
     Indication: SYSTEMIC LUPUS ERYTHEMATOSUS
     Route: 048
     Dates: start: 20170117
  9. WARFARIN [Concomitant]
     Active Substance: WARFARIN
     Indication: SYSTEMIC LUPUS ERYTHEMATOSUS
  10. AROTINOLOL HYDROCHLORIDE [Concomitant]
     Active Substance: AROTINOLOL HYDROCHLORIDE
     Indication: PRODUCT USED FOR UNKNOWN INDICATION
  11. PREDNISOLONE. [Suspect]
     Active Substance: PREDNISOLONE
     Indication: SYSTEMIC LUPUS ERYTHEMATOSUS
     Route: 048
  12. PL [Concomitant]
     Active Substance: ACETAMINOPHEN\CAFFEINE\PROMETHAZINE\SALICYLAMIDE
     Indication: SYSTEMIC LUPUS ERYTHEMATOSUS
     Dates: start: 2016
  13. MICARDIS [Concomitant]
     Active Substance: TELMISARTAN
     Indication: PRODUCT USED FOR UNKNOWN INDICATION
  14. NEXIUM [Concomitant]
     Active Substance: ESOMEPRAZOLE MAGNESIUM
     Indication: INVESTIGATION
  15. ATELEC [Concomitant]
     Active Substance: CILNIDIPINE
     Indication: PRODUCT USED FOR UNKNOWN INDICATION

REACTIONS (2)
  - Cataract [Not Recovered/Not Resolved]
  - Chorioretinal atrophy [Not Recovered/Not Resolved]

NARRATIVE: CASE EVENT DATE: 2019
